FAERS Safety Report 25902736 (Version 1)
Quarter: 2025Q4

REPORT INFORMATION
  Report Type: Spontaneous
  Country: US (occurrence: US)
  Receive Date: 20251009
  Receipt Date: 20251009
  Transmission Date: 20260117
  Serious: No
  Sender: ROCHE
  Company Number: US-ROCHE-10000401012

PATIENT
  Age: 52 Year
  Sex: Female

DRUGS (2)
  1. XOLAIR [Suspect]
     Active Substance: OMALIZUMAB
     Indication: Immunology test abnormal
     Dosage: STRENGTH: 300MG/2ML
     Route: 058
     Dates: start: 202106
  2. XOLAIR [Suspect]
     Active Substance: OMALIZUMAB
     Indication: Asthma

REACTIONS (5)
  - Dyspnoea [Unknown]
  - Dysphagia [Unknown]
  - Paraesthesia oral [Unknown]
  - Pharyngeal paraesthesia [Unknown]
  - Dry mouth [Unknown]

NARRATIVE: CASE EVENT DATE: 20250921
